FAERS Safety Report 6626700-0 (Version None)
Quarter: 2010Q1

REPORT INFORMATION
  Report Type: 
  Country: None (occurrence: None)
  Receive Date: 20100308
  Receipt Date: 20100223
  Transmission Date: 20100710
  Serious: Yes (Life-Threatening, Hospitalization)
  Sender: FDA-Public Use
  Company Number: 2010AP000373

PATIENT
  Sex: Female

DRUGS (9)
  1. ALENDRONATE SODIUM [Suspect]
     Indication: OSTEOPOROSIS
     Dosage: 70 MG;PO
     Route: 048
     Dates: start: 20090825
  2. CALCIUM CARBONATE [Concomitant]
  3. COLECALCIFEROL (COLECALCIFEROL) [Concomitant]
  4. LISINOPRIL [Concomitant]
  5. OMEPRAZOLE [Concomitant]
  6. QUININE SULFATE [Concomitant]
  7. SULFASALAZINE [Concomitant]
  8. TOLTERODINE (TOLERODINE) [Concomitant]
  9. SODIUM FLUORIDE (SODIUM FLUORIDE) [Concomitant]

REACTIONS (1)
  - ANKLE FRACTURE [None]
